FAERS Safety Report 4929799-2 (Version None)
Quarter: 2006Q1

REPORT INFORMATION
  Report Type: 
  Country: None (occurrence: None)
  Receive Date: 20060224
  Receipt Date: 20060213
  Transmission Date: 20060701
  Serious: Yes (Death, Other)
  Sender: FDA-Public Use
  Company Number: HQWYE799314FEB06

PATIENT
  Sex: Female

DRUGS (3)
  1. PREMPRO [Suspect]
     Dosage: UNK
     Route: 065
  2. CYCRIN [Suspect]
     Dosage: UNK
     Route: 065
  3. PREMARIN [Suspect]
     Dosage: UNK
     Route: 065

REACTIONS (1)
  - BREAST CANCER METASTATIC [None]
